FAERS Safety Report 6187387-7 (Version None)
Quarter: 2009Q2

REPORT INFORMATION
  Report Type: 
  Country: None (occurrence: None)
  Receive Date: 20090512
  Receipt Date: 20090430
  Transmission Date: 20091009
  Serious: Yes (Life-Threatening, Hospitalization)
  Sender: FDA-Public Use
  Company Number: B0573203A

PATIENT
  Sex: Female
  Weight: 60 kg

DRUGS (3)
  1. COMBIVIR [Suspect]
     Indication: DRUG USE FOR UNKNOWN INDICATION
     Route: 048
     Dates: start: 20080801, end: 20080912
  2. ACETAMINOPHEN [Suspect]
     Route: 048
     Dates: start: 20080901, end: 20080901
  3. VIRAMUNE [Suspect]
     Indication: DRUG USE FOR UNKNOWN INDICATION
     Route: 048
     Dates: start: 20080801, end: 20080912

REACTIONS (13)
  - ANAEMIA [None]
  - DENGUE FEVER [None]
  - GASTRIC HAEMORRHAGE [None]
  - GASTROINTESTINAL HAEMORRHAGE [None]
  - HEPATIC FAILURE [None]
  - HEPATIC NECROSIS [None]
  - HEPATIC STEATOSIS [None]
  - HEPATOCELLULAR INJURY [None]
  - PERITONITIS [None]
  - PYREXIA [None]
  - TYPHOID FEVER [None]
  - UPPER GASTROINTESTINAL HAEMORRHAGE [None]
  - VARICES OESOPHAGEAL [None]
